FAERS Safety Report 5685282-0 (Version None)
Quarter: 2008Q1

REPORT INFORMATION
  Report Type: 
  Country: None (occurrence: None)
  Receive Date: 20080328
  Receipt Date: 20080320
  Transmission Date: 20080703
  Serious: Yes (Life-Threatening, Other)
  Sender: FDA-Public Use
  Company Number: DE-PFIZER INC-2008017890

PATIENT
  Sex: Female

DRUGS (1)
  1. REVATIO [Suspect]
     Indication: CARDIAC DISORDER

REACTIONS (6)
  - ANOREXIA [None]
  - ASTHENIA [None]
  - GAIT DISTURBANCE [None]
  - HYPERTENSION [None]
  - NAUSEA [None]
  - VASODILATION PROCEDURE [None]
